FAERS Safety Report 20617179 (Version 4)
Quarter: 2024Q2

REPORT INFORMATION
  Report Type: Spontaneous
  Country: FR (occurrence: FR)
  Receive Date: 20220321
  Receipt Date: 20240627
  Transmission Date: 20240716
  Serious: Yes (Other)
  Sender: FDA-Public Use
  Company Number: FR-KYOWAKIRIN-2022BKK003842

PATIENT

DRUGS (1)
  1. POTELIGEO [Suspect]
     Active Substance: MOGAMULIZUMAB-KPKC
     Indication: Hypereosinophilic syndrome
     Dosage: UNK
     Route: 042
     Dates: start: 20210630

REACTIONS (3)
  - Anaphylactoid reaction [Unknown]
  - Tongue oedema [Unknown]
  - Product use in unapproved indication [Unknown]
